FAERS Safety Report 7644848-9 (Version None)
Quarter: 2011Q3

REPORT INFORMATION
  Report Type: 
  Country: None (occurrence: None)
  Receive Date: 20110729
  Receipt Date: 20110726
  Transmission Date: 20111222
  Serious: Yes (Hospitalization)
  Sender: FDA-Public Use
  Company Number: FR-SANOFI-AVENTIS-2011SA045812

PATIENT
  Age: 73 Year
  Sex: Male

DRUGS (3)
  1. PRAVASTATIN [Concomitant]
     Route: 048
     Dates: start: 20091001, end: 20110420
  2. CORONARY VASODILATORS [Concomitant]
     Route: 048
     Dates: start: 20091001, end: 20110530
  3. MULTAQ [Suspect]
     Indication: ATRIAL FIBRILLATION
     Route: 048
     Dates: start: 20101027, end: 20110608

REACTIONS (2)
  - GAIT DISTURBANCE [None]
  - MYALGIA [None]
